FAERS Safety Report 15970158 (Version 1)
Quarter: 2019Q1

REPORT INFORMATION
  Report Type: Spontaneous
  Country: NL (occurrence: NL)
  Receive Date: 20190215
  Receipt Date: 20190215
  Transmission Date: 20190418
  Serious: Yes (Other)
  Sender: FDA-Public Use
  Company Number: NL-MYLANLABS-2019M1014134

PATIENT
  Sex: Female

DRUGS (3)
  1. GLIVEC [Interacting]
     Active Substance: IMATINIB MESYLATE
     Indication: GASTROINTESTINAL STROMAL TUMOUR
     Dosage: 400 MG, UNK
     Route: 065
     Dates: start: 2011, end: 2013
  2. GLIVEC [Interacting]
     Active Substance: IMATINIB MESYLATE
     Dosage: 600 MG, UNK
     Route: 065
     Dates: start: 2013
  3. VERAPAMIL [Suspect]
     Active Substance: VERAPAMIL HYDROCHLORIDE
     Indication: ARRHYTHMIA
     Dosage: 120 MG, QD (SINCE OVER A YEAR)
     Route: 065

REACTIONS (3)
  - Drug level increased [Unknown]
  - Arrhythmia [Unknown]
  - Drug interaction [Unknown]
